FAERS Safety Report 4746706-6 (Version None)
Quarter: 2005Q3

REPORT INFORMATION
  Report Type: 
  Country: None (occurrence: None)
  Receive Date: 20050816
  Receipt Date: 20050816
  Transmission Date: 20060218
  Serious: Yes (Life-Threatening, Hospitalization)
  Sender: FDA-Public Use
  Company Number: None

PATIENT
  Age: 37 Year
  Sex: Female
  Weight: 44.2 kg

DRUGS (2)
  1. METHADONE MIAINTENCE [Suspect]
     Indication: DRUG DEPENDENCE
     Dosage: 180 MG PO DAILY [CHRONIC MAINTENANCE TREATMENT]
     Route: 048
  2. AMIONDARONE [Suspect]
     Indication: VENTRICULAR TACHYCARDIA
     Dosage: 150 MG BOLUS-THEN IV AT 1 MG /MIN
     Route: 040
     Dates: start: 20050729, end: 20050729

REACTIONS (6)
  - CHEST PAIN [None]
  - ELECTROCARDIOGRAM QT PROLONGED [None]
  - LOSS OF CONSCIOUSNESS [None]
  - TORSADE DE POINTES [None]
  - VENTRICULAR EXTRASYSTOLES [None]
  - VENTRICULAR TACHYCARDIA [None]
